FAERS Safety Report 10267342 (Version 3)
Quarter: 2014Q3

REPORT INFORMATION
  Report Type: Report from Study
  Country: NZ (occurrence: NZ)
  Receive Date: 20140630
  Receipt Date: 20140708
  Transmission Date: 20150326
  Serious: Yes (Life-Threatening, Hospitalization, Other)
  Sender: FDA-Public Use
  Company Number: PHHY2014NZ074420

PATIENT
  Age: 55 Year
  Sex: Male

DRUGS (6)
  1. LAMOTRIGINE. [Concomitant]
     Active Substance: LAMOTRIGINE
     Indication: AFFECTIVE DISORDER
  2. SODIUM VALPROATE [Concomitant]
     Active Substance: VALPROATE SODIUM
     Indication: AFFECTIVE DISORDER
  3. CLOZARIL [Suspect]
     Active Substance: CLOZAPINE
     Dosage: UNK
     Route: 048
  4. LAMOTRIGINE. [Concomitant]
     Active Substance: LAMOTRIGINE
     Indication: CONVULSION
     Dosage: 100 MG, NOCTE
     Route: 048
     Dates: start: 2006
  5. CLOZARIL [Suspect]
     Active Substance: CLOZAPINE
     Indication: SCHIZOPHRENIA
     Dosage: 375 MG NOCTE
     Route: 048
     Dates: start: 20040113, end: 20140613
  6. SODIUM VALPROATE [Concomitant]
     Active Substance: VALPROATE SODIUM
     Indication: CONVULSION
     Dosage: 1200 MG, QD
     Route: 048
     Dates: start: 2006, end: 20140613

REACTIONS (30)
  - Pneumonitis [Recovered/Resolved]
  - Pyrexia [Unknown]
  - White blood cell count increased [Recovered/Resolved]
  - Activated partial thromboplastin time prolonged [Not Recovered/Not Resolved]
  - Fibrin D dimer increased [Not Recovered/Not Resolved]
  - Disseminated intravascular coagulation [Unknown]
  - Haematocrit decreased [Not Recovered/Not Resolved]
  - H1N1 influenza [Recovered/Resolved]
  - Prothrombin time prolonged [Not Recovered/Not Resolved]
  - Blood fibrinogen increased [Unknown]
  - Granulocytopenia [Unknown]
  - Fall [Unknown]
  - Red cell fragmentation syndrome [Unknown]
  - Monocyte count increased [Not Recovered/Not Resolved]
  - Haemoglobin decreased [Not Recovered/Not Resolved]
  - Sepsis [Unknown]
  - Protein total decreased [Unknown]
  - Neutropenia [Recovered/Resolved]
  - Platelet count decreased [Recovered/Resolved]
  - White blood cell count decreased [Recovered/Resolved]
  - C-reactive protein increased [Not Recovered/Not Resolved]
  - Gamma-glutamyltransferase increased [Unknown]
  - Lymphocyte count decreased [Recovered/Resolved]
  - Thrombocytopenia [Not Recovered/Not Resolved]
  - Head injury [Recovered/Resolved]
  - Neutrophil count increased [Recovered/Resolved]
  - Blood potassium decreased [Recovered/Resolved]
  - Pancytopenia [Recovered/Resolved]
  - Lower respiratory tract infection [Recovered/Resolved]
  - Malaise [Unknown]

NARRATIVE: CASE EVENT DATE: 20120124
